FAERS Safety Report 25593624 (Version 1)
Quarter: 2025Q3

REPORT INFORMATION
  Report Type: Report from Study
  Country: CA (occurrence: CA)
  Receive Date: 20250722
  Receipt Date: 20250722
  Transmission Date: 20251021
  Serious: Yes (Hospitalization)
  Sender: ALEXION PHARMACEUTICALS
  Company Number: CA-AstraZeneca-CH-00888472A

PATIENT
  Sex: Female

DRUGS (7)
  1. SOLIRIS [Suspect]
     Active Substance: ECULIZUMAB
     Indication: Paroxysmal nocturnal haemoglobinuria
     Dosage: 600 MILLIGRAM, QW
     Dates: start: 20100617, end: 20100708
  2. SOLIRIS [Suspect]
     Active Substance: ECULIZUMAB
     Dosage: 900 MILLIGRAM, Q2W
     Dates: start: 20100715
  3. COUMADIN [Concomitant]
     Active Substance: WARFARIN SODIUM
     Indication: Anticoagulant therapy
  4. POTASSIUM [Concomitant]
     Active Substance: POTASSIUM
     Indication: Supplementation therapy
  5. MAGNESIUM [Concomitant]
     Active Substance: MAGNESIUM
     Indication: Supplementation therapy
  6. FOLIC ACID [Concomitant]
     Active Substance: FOLIC ACID
     Indication: Supplementation therapy
  7. B12 [Concomitant]
     Indication: Supplementation therapy

REACTIONS (2)
  - Wound [Unknown]
  - Asthenia [Unknown]
